FAERS Safety Report 25841942 (Version 1)
Quarter: 2025Q3

REPORT INFORMATION
  Report Type: Spontaneous
  Country: US (occurrence: US)
  Receive Date: 20250924
  Receipt Date: 20250924
  Transmission Date: 20251021
  Serious: Yes (Hospitalization)
  Sender: SANOFI AVENTIS
  Company Number: US-SA-2025SA285070

PATIENT
  Age: 63 Year
  Sex: Male

DRUGS (11)
  1. ALPROLIX [Suspect]
     Active Substance: EFTRENONACOG ALFA
     Indication: Factor IX deficiency
     Route: 042
     Dates: start: 201509
  2. ALPROLIX [Suspect]
     Active Substance: EFTRENONACOG ALFA
     Indication: Factor IX deficiency
     Route: 042
     Dates: start: 201509
  3. ALPROLIX [Suspect]
     Active Substance: EFTRENONACOG ALFA
     Route: 042
     Dates: start: 20250911, end: 20250911
  4. ALPROLIX [Suspect]
     Active Substance: EFTRENONACOG ALFA
     Route: 042
     Dates: start: 20250911, end: 20250911
  5. ALPROLIX [Suspect]
     Active Substance: EFTRENONACOG ALFA
     Dosage: 9180 U (8262-10098), QD ON POST OP DAYS 1, 2, AND 3
     Route: 042
     Dates: start: 20250912, end: 20250914
  6. ALPROLIX [Suspect]
     Active Substance: EFTRENONACOG ALFA
     Dosage: 9180 U (8262-10098), QD ON POST OP DAYS 1, 2, AND 3
     Route: 042
     Dates: start: 20250912, end: 20250914
  7. ALPROLIX [Suspect]
     Active Substance: EFTRENONACOG ALFA
     Dosage: 9180 U (8262-10098), QOD (EVERY OTHER DAY FOR 3 DOSES (POST OP DAYS 5, 7, AND 9))
     Route: 042
     Dates: start: 20250916
  8. ALPROLIX [Suspect]
     Active Substance: EFTRENONACOG ALFA
     Dosage: 9180 U (8262-10098), QOD (EVERY OTHER DAY FOR 3 DOSES (POST OP DAYS 5, 7, AND 9))
     Route: 042
     Dates: start: 20250916
  9. HEPARIN [Concomitant]
     Active Substance: HEPARIN SODIUM
  10. SODIUM CHLORIDE [Concomitant]
     Active Substance: SODIUM CHLORIDE
  11. SODIUM CHLORIDE [Concomitant]
     Active Substance: SODIUM CHLORIDE

REACTIONS (2)
  - Post procedural haemorrhage [Unknown]
  - Parathyroidectomy [Unknown]

NARRATIVE: CASE EVENT DATE: 20250911
